FAERS Safety Report 4299991-1 (Version None)
Quarter: 2004Q1

REPORT INFORMATION
  Report Type: 
  Country: None (occurrence: None)
  Receive Date: 20040218
  Receipt Date: 20040209
  Transmission Date: 20041129
  Serious: Yes (Hospitalization)
  Sender: FDA-Public Use
  Company Number: STA-AE-04-MTX-052

PATIENT
  Age: 41 Year
  Sex: Male

DRUGS (15)
  1. METHOTREXATE [Suspect]
     Indication: RHEUMATOID ARTHRITIS
     Dosage: 10 MG 1X PER 1 WK ORAL
     Route: 048
     Dates: start: 20010601, end: 20020201
  2. METHOTREXATE [Suspect]
     Indication: RHEUMATOID ARTHRITIS
     Dosage: 12.5 MG 1X PER 1 WK ORAL
     Route: 048
     Dates: start: 20020201, end: 20031101
  3. METHOTREXATE [Suspect]
     Indication: RHEUMATOID ARTHRITIS
     Dosage: 15 MG 1X PER 1 WK ORAL
     Route: 048
     Dates: start: 20031101
  4. FLURBIPROFEN [Suspect]
     Indication: RHEUMATOID ARTHRITIS
     Dosage: 300 MG 1X PER 1 DAY ORAL
     Route: 048
     Dates: start: 20010601, end: 20031104
  5. PREDNISONE [Suspect]
     Indication: RHEUMATOID ARTHRITIS
     Dosage: 20 MG 1X PER 1 DAY ORAL
     Route: 048
     Dates: start: 20010601, end: 20020201
  6. PREDNISONE [Suspect]
     Dosage: 30 MG 1X PER 1 WK
     Dates: start: 20020201, end: 20020801
  7. PREDNISONE [Suspect]
     Dosage: 16 MG 1X PER 1 DAY ORAL
     Route: 048
     Dates: start: 20020801
  8. REMICADE [Suspect]
     Indication: RHEUMATOID ARTHRITIS
     Dosage: 3 MG/KG 1X PER 8 WK, INTRAVENOUS
     Route: 042
     Dates: start: 20020611, end: 20020201
  9. REMICADE [Suspect]
     Dosage: 5 MG/KG 1X PER 8 WK, INTRAVENOUS
     Route: 042
     Dates: start: 20020201, end: 20020801
  10. REMICADE [Suspect]
     Dosage: 5 MG/KG 1X PER 7 WK, INTRAVENOUS
     Route: 042
     Dates: start: 20020801, end: 20030916
  11. FOLIC ACID [Concomitant]
  12. SUCRALFATE [Concomitant]
  13. FERROUS SULFATE TAB [Concomitant]
  14. POTASSIUM CHLORIDE [Concomitant]
  15. OSSPAN (DURAPATITE) [Concomitant]

REACTIONS (3)
  - CUTANEOUS VASCULITIS [None]
  - CYANOSIS [None]
  - URTICARIA [None]
